FAERS Safety Report 6897827-3 (Version None)
Quarter: 2010Q3

REPORT INFORMATION
  Report Type: 
  Country: None (occurrence: None)
  Receive Date: 20100802
  Receipt Date: 20070724
  Transmission Date: 20110219
  Serious: Yes (Other)
  Sender: FDA-Public Use
  Company Number: US-PFIZER INC-2007061428

PATIENT
  Sex: Female
  Weight: 109.09 kg

DRUGS (2)
  1. LYRICA [Suspect]
     Indication: CONVULSION
     Dates: start: 20050101
  2. SYNTHROID [Concomitant]

REACTIONS (3)
  - FLUID RETENTION [None]
  - OEDEMA PERIPHERAL [None]
  - WEIGHT INCREASED [None]
